FAERS Safety Report 9746599 (Version 2)
Quarter: 2014Q1

REPORT INFORMATION
  Report Type: Report from Study
  Country: IT (occurrence: IT)
  Receive Date: 20131211
  Receipt Date: 20140115
  Transmission Date: 20141002
  Serious: Yes (Death, Life-Threatening, Hospitalization, Disabling, Other)
  Sender: FDA-Public Use
  Company Number: IT-009507513-1312ITA001493

PATIENT
  Age: 49 Year
  Sex: Female

DRUGS (3)
  1. TEMOZOLOMIDE [Suspect]
     Indication: GLIOBLASTOMA MULTIFORME
     Dosage: CONCURRENT DOSE 75 MG/M2, QD
     Route: 048
  2. TEMOZOLOMIDE [Suspect]
     Dosage: ADJUVANT DOSE 150-200 MG/M2, DAILY, FOR 5 DAYS EVERY 28 DAYS
     Route: 048
  3. DEXAMETHASONE [Concomitant]
     Dosage: 2.25 MG/DAY

REACTIONS (1)
  - Pneumonia [Fatal]
